FAERS Safety Report 17452123 (Version 1)
Quarter: 2020Q1

REPORT INFORMATION
  Report Type: Spontaneous
  Country: NL (occurrence: NL)
  Receive Date: 20200224
  Receipt Date: 20200224
  Transmission Date: 20200409
  Serious: Yes (Hospitalization)
  Sender: FDA-Public Use
  Company Number: NL-VISTAPHARM, INC.-VER202002-000339

PATIENT
  Age: 78 Year
  Sex: Female

DRUGS (1)
  1. DIGOXIN. [Suspect]
     Active Substance: DIGOXIN
     Indication: CARDIAC FAILURE
     Dosage: 1/8 MG

REACTIONS (6)
  - Atrioventricular block second degree [Recovering/Resolving]
  - Toxicity to various agents [Unknown]
  - Bundle branch block right [Recovering/Resolving]
  - Amnesia [Recovering/Resolving]
  - Dyspnoea [Unknown]
  - Confusional state [Recovering/Resolving]
